FAERS Safety Report 16081623 (Version 1)
Quarter: 2019Q1

REPORT INFORMATION
  Report Type: Spontaneous
  Country: US (occurrence: US)
  Receive Date: 20190316
  Receipt Date: 20190316
  Transmission Date: 20190418
  Serious: Yes (Life-Threatening)
  Sender: FDA-Public Use
  Company Number: US-BIO PRODUCTS LABORATORY LTD-2064116

PATIENT
  Age: 60 Year
  Sex: Male

DRUGS (7)
  1. RITUXIMAB. [Suspect]
     Active Substance: RITUXIMAB
  2. GENERIC IVIG [Suspect]
     Active Substance: HUMAN IMMUNOGLOBULIN G
     Indication: MYELODYSPLASTIC SYNDROME
     Route: 042
  3. HIGH DOSE CORTICOSTEROIDS [Suspect]
     Active Substance: UNSPECIFIED INGREDIENT
  4. LOW DOSE DANAZOL [Suspect]
     Active Substance: DANAZOL
  5. ROMIPLOSTIM [Suspect]
     Active Substance: ROMIPLOSTIM
  6. PLASMA EXCHANGE [Suspect]
     Active Substance: ALBUMIN HUMAN
  7. ELTROMBOPAG [Suspect]
     Active Substance: ELTROMBOPAG

REACTIONS (2)
  - Haemorrhage [Recovering/Resolving]
  - Off label use [Recovering/Resolving]
